FAERS Safety Report 8398361-4 (Version None)
Quarter: 2012Q2

REPORT INFORMATION
  Report Type: 
  Country: None (occurrence: None)
  Receive Date: 20120323
  Receipt Date: 20101231
  Transmission Date: 20120825
  Serious: Yes (Disabling)
  Sender: FDA-Public Use
  Company Number: 163-21880-10120541

PATIENT
  Age: 54 Year
  Sex: Female
  Weight: 69.8539 kg

DRUGS (4)
  1. REVLIMID [Suspect]
     Indication: MYELOFIBROSIS
     Dosage: 10 MG, 1 IN 1 D, PO
     Route: 048
     Dates: start: 20100526, end: 20101018
  2. NEXIUM [Concomitant]
  3. SUMATRIPTAN SUCCINATE (IMITREX) [Concomitant]
  4. ASPIRIN [Concomitant]

REACTIONS (7)
  - COUGH [None]
  - DISEASE PROGRESSION [None]
  - HEADACHE [None]
  - DRUG INEFFECTIVE [None]
  - MYELOFIBROSIS [None]
  - DEPRESSION [None]
  - ANXIETY [None]
